FAERS Safety Report 8619414-9 (Version None)
Quarter: 2012Q3

REPORT INFORMATION
  Report Type: 
  Country: None (occurrence: None)
  Receive Date: 20120824
  Receipt Date: 20120823
  Transmission Date: 20120928
  Serious: Yes (Other)
  Sender: FDA-Public Use
  Company Number: BE-PFIZER INC-2012203632

PATIENT
  Age: 60 Year
  Sex: Male

DRUGS (7)
  1. CORTISONE [Concomitant]
     Indication: CEREBELLAR ATAXIA
     Dosage: UNK
     Dates: start: 20111101
  2. CORDARONE [Suspect]
     Dosage: 4 DF, WEEKLY
     Dates: start: 20120101
  3. CORDARONE [Suspect]
     Dosage: 3 DF, WEEKLY
     Dates: start: 20120201
  4. STRUMAZOLE [Concomitant]
     Indication: HEPATITIS CHOLESTATIC
     Dosage: 16 MG, 1X/DAY
  5. CORDARONE [Suspect]
     Dosage: 1 DF, WEEKLY
     Dates: start: 20120401, end: 20120430
  6. CORDARONE [Suspect]
     Indication: ATRIAL FIBRILLATION
     Dosage: 5 DF, WEEKLY
     Dates: start: 20100101
  7. CORDARONE [Suspect]
     Dosage: 2 DF, WEEKLY
     Dates: start: 20120301

REACTIONS (2)
  - CEREBELLAR ATAXIA [None]
  - HYPERTHYROIDISM [None]
